FAERS Safety Report 14996677 (Version 1)
Quarter: 2018Q2

REPORT INFORMATION
  Report Type: Spontaneous
  Country: NL (occurrence: NL)
  Receive Date: 20180611
  Receipt Date: 20180611
  Transmission Date: 20180711
  Serious: Yes (Hospitalization)
  Sender: FDA-Public Use
  Company Number: NL-AMGEN-NLDSP2018076588

PATIENT
  Age: 60 Year
  Sex: Female
  Weight: 94 kg

DRUGS (19)
  1. DERMOVATE [Concomitant]
     Active Substance: CLOBETASOL
     Dosage: 0.5 MG/G, QD
     Dates: start: 20170831, end: 20171207
  2. PARACETAMOL [Concomitant]
     Active Substance: ACETAMINOPHEN
     Dosage: 1000 MG, Q8H
     Dates: start: 20150508
  3. ACETYLSALICYLIC ACID [Concomitant]
     Active Substance: ASPIRIN
     Dosage: 80 MG, QD
     Dates: start: 20170717
  4. METOPROLOL. [Concomitant]
     Active Substance: METOPROLOL
     Dosage: 25 MG, QD
     Dates: start: 20160708
  5. AMIODARON [Concomitant]
     Active Substance: AMIODARONE
     Dosage: 200 MG, Q12H
     Dates: start: 20170821
  6. ARTELAC [Concomitant]
     Active Substance: HYPROMELLOSES
     Dosage: 3.2 MG/ML, QD
     Dates: start: 20151127, end: 20180508
  7. RENAGEL [Concomitant]
     Active Substance: SEVELAMER HYDROCHLORIDE
     Dosage: 800 MG, Q4H
     Dates: start: 20160523, end: 20180224
  8. PANTOPRAZOL [Concomitant]
     Active Substance: PANTOPRAZOLE SODIUM
     Dosage: 40 MG, Q12H
     Dates: start: 20150515
  9. OXYCODON [Concomitant]
     Active Substance: OXYCODONE
     Dosage: 10 MG,(2 DD 1-2 TABLET) UNK
  10. PROLIA [Suspect]
     Active Substance: DENOSUMAB
     Indication: OSTEOPOROSIS
     Dosage: 60 MG/ML, Q6MO
     Route: 065
     Dates: start: 20171031, end: 20171115
  11. FLUVOXAMINE [Concomitant]
     Active Substance: FLUVOXAMINE
     Dosage: 100 MG, QD
     Dates: start: 20150515
  12. D CURA [Concomitant]
     Dosage: 2 ML,(25000IE AMPUL 1ML), Q2WK
     Dates: start: 20160411
  13. GABAPENTINE [Concomitant]
     Active Substance: GABAPENTIN
     Dosage: 100 MG, Q8H
     Dates: start: 20160708
  14. MOMETASON [Concomitant]
     Active Substance: MOMETASONE FUROATE
     Dosage: 1 DD AANBRENGEN
     Dates: start: 20170127, end: 20180107
  15. LACTULOSE. [Concomitant]
     Active Substance: LACTULOSE
     Dosage: 15 ML (670 MG/ML), UNK
     Dates: start: 20170404, end: 20171228
  16. CLOPIDOGREL [Concomitant]
     Active Substance: CLOPIDOGREL BISULFATE
     Dosage: 75 MG, QD
     Dates: start: 20150515
  17. ALFACALCIDOL [Concomitant]
     Active Substance: ALFACALCIDOL
     Dosage: 1 MCG, UNK
     Dates: start: 20171023
  18. GLICLAZIDE [Concomitant]
     Active Substance: GLICLAZIDE
     Dosage: 30 MG, Q12H
     Dates: start: 20150508, end: 20171212
  19. ALLOPURINOL. [Concomitant]
     Active Substance: ALLOPURINOL
     Dosage: 1 DD 1
     Dates: start: 20150508

REACTIONS (2)
  - Electrocardiogram QT prolonged [Recovered/Resolved]
  - Hypocalcaemia [Recovered/Resolved]

NARRATIVE: CASE EVENT DATE: 20171115
